FAERS Safety Report 8435630-3 (Version None)
Quarter: 2012Q2

REPORT INFORMATION
  Report Type: 
  Country: None (occurrence: None)
  Receive Date: 20120614
  Receipt Date: 20120611
  Transmission Date: 20120825
  Serious: Yes (Other)
  Sender: FDA-Public Use
  Company Number: JP-PFIZER INC-2012025217

PATIENT
  Age: 69 Year
  Sex: Male
  Weight: 80.1 kg

DRUGS (27)
  1. AZUCURENIN S [Concomitant]
     Dosage: 2 G, UNK
  2. WARFARIN SODIUM [Suspect]
     Dosage: 3MG
     Route: 048
     Dates: start: 20110211, end: 20110310
  3. CEFAZOLIN [Concomitant]
     Dosage: UNK
     Dates: start: 20110204, end: 20110206
  4. CEFAZOLIN [Concomitant]
     Dosage: UNK
     Dates: start: 20110203, end: 20110203
  5. WARFARIN SODIUM [Suspect]
     Dosage: UNK
     Route: 048
     Dates: start: 20110128, end: 20110203
  6. NORVASC [Concomitant]
     Dosage: 5 MG, UNK
     Route: 048
  7. AMARYL [Concomitant]
     Dosage: 2 G, UNK
  8. WARFARIN SODIUM [Suspect]
     Dosage: 5.5MG
     Route: 048
     Dates: start: 20110210, end: 20110210
  9. LASIX [Concomitant]
     Dosage: 40MG
     Dates: end: 20110201
  10. ALDACTONE [Concomitant]
     Dosage: 50MG
     Route: 048
     Dates: end: 20110302
  11. ACTOS [Concomitant]
     Dosage: 25 MG, UNK
     Dates: start: 20110208
  12. ALOSENN [Concomitant]
     Dosage: 0.5 G, UNK
     Dates: end: 20110209
  13. ZYVOX [Suspect]
     Indication: MEDIASTINITIS
     Dosage: 600 MG, 2X/DAY
     Route: 041
     Dates: start: 20110207, end: 20110302
  14. CEFAZOLIN [Concomitant]
     Dosage: UNK
     Dates: start: 20110207, end: 20110207
  15. RABEPRAZOLE SODIUM [Concomitant]
     Dosage: 10MG
  16. TENORMIN [Concomitant]
     Dosage: 25MG
  17. MIYA BM [Concomitant]
     Dosage: 120 MG, UNK
     Dates: start: 20110203, end: 20110303
  18. WARFARIN SODIUM [Suspect]
     Dosage: 3MG
     Route: 048
     Dates: start: 20110206, end: 20110209
  19. WARFARIN SODIUM [Suspect]
     Dosage: 4MG
     Route: 048
     Dates: start: 20110315
  20. OLMESARTAN MEDOXOMIL [Concomitant]
     Dosage: 20 MG, UNK
  21. CEFOTIAM HYDROCHLORIDE [Concomitant]
     Indication: MEDIASTINITIS
     Dosage: 1 G, 2X/DAY
     Route: 041
     Dates: start: 20110207, end: 20110221
  22. LASIX [Concomitant]
     Dosage: 20MG
     Dates: start: 20110202, end: 20110219
  23. ZYVOX [Suspect]
     Dosage: 600 MG, 1X/DAY
     Route: 041
     Dates: start: 20110303, end: 20110303
  24. WARFARIN SODIUM [Suspect]
     Dosage: 3.5MG
     Route: 048
     Dates: start: 20110311, end: 20110314
  25. PREDNISOLONE [Concomitant]
     Dosage: 5MG
  26. ALENDRONATE SODIUM [Concomitant]
     Dosage: 5 MG, UNK
  27. MIGLITOL [Concomitant]
     Dosage: 150 MG, UNK
     Dates: start: 20110208

REACTIONS (1)
  - INTERNATIONAL NORMALISED RATIO INCREASED [None]
